FAERS Safety Report 25869831 (Version 1)
Quarter: 2025Q4

REPORT INFORMATION
  Report Type: Report from Study
  Country: US (occurrence: US)
  Receive Date: 20251001
  Receipt Date: 20251001
  Transmission Date: 20260118
  Serious: Yes (Other)
  Sender: OTSUKA
  Company Number: US-MMM-Otsuka-MP5H6Y9Q

PATIENT
  Age: 54 Year
  Sex: Male
  Weight: 85.71 kg

DRUGS (9)
  1. TOLVAPTAN [Suspect]
     Active Substance: TOLVAPTAN
     Indication: Congenital cystic kidney disease
     Dosage: 45 MG, QD (UPON WAKENING)
     Dates: start: 20240916, end: 20250717
  2. TOLVAPTAN [Suspect]
     Active Substance: TOLVAPTAN
     Dosage: 15 MG, QD (8 H LATER)
     Dates: start: 20240916, end: 20250717
  3. ALLOPURINOL [Concomitant]
     Active Substance: ALLOPURINOL
     Indication: Product used for unknown indication
     Dosage: 1 DF, DAILY (100 MG 1 TABLET EVERY DAY)
     Dates: start: 20250428
  4. HYDROXYZINE [Concomitant]
     Active Substance: HYDROXYZINE HYDROCHLORIDE
     Indication: Pruritus
     Dosage: 1 DF, TID (10MG TABLET TREE TIMES DAILY AS NEEDED)
     Dates: start: 20250524
  5. LEVOTHYROXINE [Concomitant]
     Active Substance: LEVOTHYROXINE
     Indication: Product used for unknown indication
     Dosage: 1 DF, DAILY (25 MCG EVERY DAY)
     Dates: start: 20250518
  6. METOPROLOL TARTRATE [Concomitant]
     Active Substance: METOPROLOL TARTRATE
     Indication: Product used for unknown indication
     Dosage: 1 DF, BID (100 MG TWICE DAILY)
     Dates: start: 20250602
  7. ROSUVASTATIN [Concomitant]
     Active Substance: ROSUVASTATIN
     Indication: Product used for unknown indication
     Dosage: 1 DF, DAILY (5MG DAILY)
     Dates: start: 20250410
  8. TRIAMCINOLONE ACETONIDE [Concomitant]
     Active Substance: TRIAMCINOLONE ACETONIDE
     Indication: Product used for unknown indication
     Dosage: UNK, BID (APPLY 1 APPLICATION TO THE AFFECTED AREA TOPICALLY TWICE DAILY FOR 2 WEEKS)
     Dates: start: 20250524
  9. LOKELMA [Concomitant]
     Active Substance: SODIUM ZIRCONIUM CYCLOSILICATE
     Indication: Product used for unknown indication
     Dosage: MIX AND DRINK 1 PACKET EVERY DAY
     Dates: start: 20250714

REACTIONS (5)
  - Dialysis [Not Recovered/Not Resolved]
  - Renal impairment [Unknown]
  - Nausea [Recovered/Resolved]
  - Fatigue [Recovered/Resolved]
  - Constipation [Unknown]

NARRATIVE: CASE EVENT DATE: 20250725
